FAERS Safety Report 17669829 (Version 1)
Quarter: 2020Q2

REPORT INFORMATION
  Report Type: Spontaneous
  Country: US (occurrence: US)
  Receive Date: 20200414
  Receipt Date: 20200414
  Transmission Date: 20200713
  Serious: Yes (Hospitalization)
  Sender: FDA-Public Use
  Company Number: None

PATIENT
  Age: 39 Year
  Sex: Female
  Weight: 47.25 kg

DRUGS (1)
  1. PSILOCYBIN [Suspect]
     Active Substance: PSILOCYBINE
     Indication: ANOREXIA NERVOSA
     Dates: start: 20191216, end: 20191216

REACTIONS (4)
  - Nodal arrhythmia [None]
  - Chest pain [None]
  - Cyanosis [None]
  - Dizziness [None]

NARRATIVE: CASE EVENT DATE: 20191221
